FAERS Safety Report 21799437 (Version 1)
Quarter: 2022Q4

REPORT INFORMATION
  Report Type: Spontaneous
  Country: US (occurrence: None)
  Receive Date: 20221229
  Receipt Date: 20221229
  Transmission Date: 20230113
  Serious: Yes (Hospitalization)
  Sender: FDA-Public Use
  Company Number: None

PATIENT
  Sex: Female
  Weight: 69.4 kg

DRUGS (12)
  1. METHYLPREDNISOLONE [Suspect]
     Active Substance: METHYLPREDNISOLONE
     Indication: Plasma cell myeloma
     Route: 042
     Dates: start: 202209
  2. LENALIDOMIDE [Suspect]
     Active Substance: LENALIDOMIDE
     Indication: Plasma cell myeloma
     Dosage: FREQUENCY : DAILY;?
     Route: 048
     Dates: start: 202209
  3. ALPRAZOLAM [Concomitant]
  4. ASPIRIN [Concomitant]
  5. CITALOPRAM [Concomitant]
  6. DARZALEX [Concomitant]
  7. DIPHENHYDRAMINE [Concomitant]
  8. MONTELUKAST [Concomitant]
  9. OMEPRAZOLE [Concomitant]
  10. VALTREX [Concomitant]
  11. DIPHENHYDRAMINE [Concomitant]
  12. DARZALEX [Concomitant]

REACTIONS (4)
  - Rash [None]
  - COVID-19 [None]
  - Pain [None]
  - Therapy cessation [None]
